FAERS Safety Report 10581387 (Version 2)
Quarter: 2014Q4

REPORT INFORMATION
  Report Type: Spontaneous
  Country: US (occurrence: None)
  Receive Date: 20141110
  Receipt Date: 20141205
  Transmission Date: 20150529
  Serious: Yes (Hospitalization, Other)
  Sender: FDA-Public Use
  Company Number: ADR-2014-02061

PATIENT
  Age: 52 Year
  Sex: Female

DRUGS (3)
  1. OTHER UNKNOWN MEDICATIONS [Suspect]
     Active Substance: UNSPECIFIED INGREDIENT
  2. BACLOFEN INTRATHECAL [Suspect]
     Active Substance: BACLOFEN
     Indication: PAIN
  3. FENTANYL. [Suspect]
     Active Substance: FENTANYL

REACTIONS (3)
  - Amnesia [None]
  - Road traffic accident [None]
  - Head injury [None]

NARRATIVE: CASE EVENT DATE: 20140930
